FAERS Safety Report 5672140-0 (Version None)
Quarter: 2008Q1

REPORT INFORMATION
  Report Type: 
  Country: None (occurrence: None)
  Receive Date: 20080319
  Receipt Date: 20080306
  Transmission Date: 20080703
  Serious: Yes (Hospitalization, Other)
  Sender: FDA-Public Use
  Company Number: US-ELI_LILLY_AND_COMPANY-US200802004310

PATIENT
  Sex: Female
  Weight: 50.794 kg

DRUGS (5)
  1. ZYPREXA [Suspect]
     Indication: SCHIZOPHRENIA, PARANOID TYPE
     Dosage: 5 MG, EACH MORNING
     Route: 048
     Dates: start: 20040101
  2. ZYPREXA [Suspect]
     Dosage: 20 MG, EACH EVENING
     Route: 048
     Dates: start: 20040101
  3. ZYPREXA ZYDIS [Suspect]
     Indication: SCHIZOPHRENIA
     Dosage: UNK, UNK
  4. ZYPREXA [Suspect]
     Indication: AGITATION
     Dosage: 5 MG, AS NEEDED
     Route: 030
  5. HALOPERIDOL DECANOATE [Concomitant]
     Indication: AGITATION
     Dosage: 5 MG, AS NEEDED
     Route: 048
     Dates: start: 20040101, end: 20080212

REACTIONS (5)
  - BLOOD POTASSIUM INCREASED [None]
  - CORONARY ARTERY DISEASE [None]
  - ELECTROCARDIOGRAM QT PROLONGED [None]
  - LEFT VENTRICULAR HYPERTROPHY [None]
  - MENTAL DISORDER [None]
